FAERS Safety Report 9824913 (Version 2)
Quarter: 2014Q1

REPORT INFORMATION
  Report Type: Report from Study
  Country: JP (occurrence: JP)
  Receive Date: 20140117
  Receipt Date: 20140327
  Transmission Date: 20141002
  Serious: Yes (Hospitalization, Other)
  Sender: FDA-Public Use
  Company Number: JP-AMGEN-JPNCT2014003114

PATIENT
  Age: 74 Year
  Sex: Female
  Weight: 60 kg

DRUGS (21)
  1. DARBEPOETIN ALFA [Suspect]
     Indication: NEPHROGENIC ANAEMIA
     Dosage: 30 MUG, Q4WK
     Route: 058
     Dates: start: 20111013, end: 20121016
  2. LASIX                              /00032601/ [Concomitant]
     Indication: DIABETIC NEPHROPATHY
     Dosage: UNK
     Route: 048
  3. ALOSITOL [Concomitant]
     Dosage: UNK
     Route: 048
  4. ITOROL [Concomitant]
     Dosage: UNK
     Route: 048
  5. AMOBAN [Concomitant]
     Dosage: UNK
     Route: 048
  6. CRESTOR [Concomitant]
     Dosage: UNK
     Route: 048
  7. FERROMIA [Concomitant]
     Dosage: UNK
     Route: 048
  8. METHYCOBAL [Concomitant]
     Dosage: UNK
     Route: 048
  9. ADALAT [Concomitant]
     Dosage: UNK
     Route: 048
  10. MEDET [Concomitant]
     Dosage: UNK
     Route: 048
  11. BASEN                              /01290601/ [Concomitant]
     Dosage: UNK
     Route: 048
  12. SELECTOL [Concomitant]
     Dosage: UNK
     Route: 048
  13. PROTECADIN [Concomitant]
     Dosage: UNK
     Route: 048
  14. HYPEN                              /00613801/ [Concomitant]
     Dosage: UNK
     Route: 048
  15. TEGRETOL [Concomitant]
     Dosage: UNK
     Route: 048
  16. SELTOUCH [Concomitant]
     Dosage: UNK
     Route: 062
  17. ALOSENN                            /00476901/ [Concomitant]
     Dosage: UNK
     Route: 048
  18. KERATINAMIN [Concomitant]
     Dosage: UNK
     Route: 061
  19. NELBON [Concomitant]
     Dosage: UNK
     Route: 048
  20. ARGAMATE [Concomitant]
     Dosage: UNK
     Route: 048
  21. RESTAMIN                           /00000401/ [Concomitant]
     Dosage: UNK
     Route: 061

REACTIONS (4)
  - Tibia fracture [Unknown]
  - Visual acuity reduced [Unknown]
  - Pruritus [Recovered/Resolved]
  - Hyperkalaemia [Recovering/Resolving]
